FAERS Safety Report 25208161 (Version 2)
Quarter: 2025Q2

REPORT INFORMATION
  Report Type: Report from Study
  Country: US (occurrence: US)
  Receive Date: 20250417
  Receipt Date: 20250501
  Transmission Date: 20250716
  Serious: Yes (Hospitalization)
  Sender: BOEHRINGER INGELHEIM
  Company Number: US-BoehringerIngelheim-2025-BI-014164

PATIENT
  Age: 82 Year
  Sex: Male

DRUGS (2)
  1. OFEV [Suspect]
     Active Substance: NINTEDANIB
     Indication: Idiopathic pulmonary fibrosis
     Dates: start: 20210310
  2. OFEV [Suspect]
     Active Substance: NINTEDANIB
     Indication: Pulmonary fibrosis
     Dates: start: 20250417

REACTIONS (12)
  - Pneumonia [Recovered/Resolved]
  - Spinal fracture [Recovering/Resolving]
  - Internal haemorrhage [Unknown]
  - Diarrhoea [Not Recovered/Not Resolved]
  - Diarrhoea [Not Recovered/Not Resolved]
  - Blood calcium decreased [Recovered/Resolved]
  - Bone disorder [Unknown]
  - Weight decreased [Recovering/Resolving]
  - Arthritis [Not Recovered/Not Resolved]
  - Faeces hard [Recovered/Resolved]
  - Osteoporosis [Unknown]
  - Spinal disorder [Unknown]

NARRATIVE: CASE EVENT DATE: 20241001
